FAERS Safety Report 12075386 (Version 7)
Quarter: 2018Q2

REPORT INFORMATION
  Report Type: Spontaneous
  Country: US (occurrence: US)
  Receive Date: 20160213
  Receipt Date: 20180502
  Transmission Date: 20180711
  Serious: No
  Sender: FDA-Public Use
  Company Number: PHEH2016US003246

PATIENT
  Sex: Female
  Weight: 63.49 kg

DRUGS (3)
  1. ZOFRAN ODT [Suspect]
     Active Substance: ONDANSETRON HYDROCHLORIDE
     Indication: VOMITING IN PREGNANCY
     Route: 048
     Dates: start: 199907
  2. ZOFRAN [Suspect]
     Active Substance: ONDANSETRON HYDROCHLORIDE
     Indication: VOMITING
     Dosage: UNK
     Route: 065
     Dates: start: 1999, end: 2000
  3. ZOFRAN [Suspect]
     Active Substance: ONDANSETRON HYDROCHLORIDE
     Indication: VOMITING
     Dosage: UNK
     Route: 065
     Dates: start: 1999, end: 2000

REACTIONS (7)
  - Emotional distress [Unknown]
  - Product use in unapproved indication [Unknown]
  - Anxiety [Unknown]
  - Injury [Unknown]
  - Pain [Unknown]
  - Anhedonia [Unknown]
  - Maternal exposure during pregnancy [Unknown]
